FAERS Safety Report 12542000 (Version 1)
Quarter: 2016Q3

REPORT INFORMATION
  Report Type: Spontaneous
  Country: NZ (occurrence: NZ)
  Receive Date: 20160708
  Receipt Date: 20160708
  Transmission Date: 20161109
  Serious: Yes (Other)
  Sender: FDA-Public Use
  Company Number: NZ-MYLANLABS-2016M1028292

PATIENT

DRUGS (16)
  1. QUETIAPINE. [Concomitant]
     Active Substance: QUETIAPINE
     Indication: SLEEP DISORDER
     Dosage: 6.25 MG, PM
     Route: 048
  2. DIAZEPAM. [Concomitant]
     Active Substance: DIAZEPAM
     Indication: STRESS
     Dosage: 3.25 DF, QD
     Route: 048
  3. NORMACOL                           /00086101/ [Concomitant]
     Active Substance: SULFAMETHOXAZOLE\TRIMETHOPRIM
     Indication: ABDOMINAL DISCOMFORT
     Dosage: UNK
     Route: 048
  4. FENTANYL TRANSDERMAL SYSTEM [Suspect]
     Active Substance: FENTANYL
     Indication: PAIN
     Dosage: UNK
     Route: 062
     Dates: start: 201108
  5. OXYNORM [Concomitant]
     Active Substance: OXYCODONE HYDROCHLORIDE
     Indication: PAIN
     Dosage: UNK, BID
     Route: 048
  6. GABAPENTIN. [Concomitant]
     Active Substance: GABAPENTIN
     Indication: PAIN
     Dosage: 300 MG, BID
     Route: 048
  7. ONDANSETRON [Concomitant]
     Active Substance: ONDANSETRON
     Indication: NAUSEA
     Dosage: UNK
     Route: 048
  8. PARACETAMOL [Concomitant]
     Active Substance: ACETAMINOPHEN
     Indication: PAIN
     Dosage: 1000 MG, BID
     Route: 048
  9. ZOPICLONE [Concomitant]
     Active Substance: ZOPICLONE
     Indication: SLEEP DISORDER
     Dosage: 15 MG, PM
     Route: 048
  10. OXYCONTIN [Concomitant]
     Active Substance: OXYCODONE HYDROCHLORIDE
     Indication: PAIN
     Dosage: 10 MG, BID
     Route: 048
  11. 5-HTP                              /00439301/ [Concomitant]
     Indication: AFFECTIVE DISORDER
     Dosage: UNK
     Route: 048
  12. FENTANYL SANDOZ [Concomitant]
     Active Substance: FENTANYL
     Indication: PAIN
     Dosage: UNK
     Route: 062
     Dates: start: 2015, end: 2015
  13. OMEPRAZOLE. [Concomitant]
     Active Substance: OMEPRAZOLE
     Indication: PRODUCT USED FOR UNKNOWN INDICATION
     Dosage: 20 MG, BID
     Route: 048
  14. OXYBUTYNIN [Concomitant]
     Active Substance: OXYBUTYNIN
     Indication: PROSTATE INFECTION
     Dosage: 5 MG, PM
     Route: 048
  15. KONSYL-D                           /00029101/ [Concomitant]
     Indication: ABDOMINAL DISCOMFORT
     Dosage: 1 DF, AM
     Route: 048
  16. LACTULOSE. [Concomitant]
     Active Substance: LACTULOSE
     Indication: ABDOMINAL DISCOMFORT
     Dosage: 35 ML, AM
     Route: 048

REACTIONS (2)
  - Suicidal ideation [Unknown]
  - Withdrawal syndrome [Recovered/Resolved]
